FAERS Safety Report 20071825 (Version 2)
Quarter: 2021Q4

REPORT INFORMATION
  Report Type: Spontaneous
  Country: CN (occurrence: CN)
  Receive Date: 20211116
  Receipt Date: 20211126
  Transmission Date: 20220304
  Serious: Yes (Death, Other)
  Sender: FDA-Public Use
  Company Number: CN-BoehringerIngelheim-2021-BI-136288

PATIENT
  Age: 59 Year
  Sex: Male

DRUGS (1)
  1. ALTEPLASE [Suspect]
     Active Substance: ALTEPLASE
     Indication: Thrombolysis
     Route: 042
     Dates: start: 202110, end: 202110

REACTIONS (2)
  - Death [Fatal]
  - Pericardial haemorrhage [Unknown]

NARRATIVE: CASE EVENT DATE: 20211001
